FAERS Safety Report 16262416 (Version 1)
Quarter: 2019Q2

REPORT INFORMATION
  Report Type: Report from Study
  Country: IT (occurrence: IT)
  Receive Date: 20190501
  Receipt Date: 20190501
  Transmission Date: 20190711
  Serious: Yes (Hospitalization)
  Sender: FDA-Public Use
  Company Number: IT-BAXTER-2019BAX008243

PATIENT
  Age: 27 Year
  Sex: Male
  Weight: 70 kg

DRUGS (3)
  1. METRONIDAZOLO BAXTER S.P.A. [Suspect]
     Active Substance: METRONIDAZOLE
     Indication: CHOLECYSTITIS ACUTE
     Dosage: 0.5 G/100 ML SOLUTION FOR INTRAVENOUS INFUSION
     Route: 042
     Dates: start: 20190323, end: 20190403
  2. TEXTAZO [Suspect]
     Active Substance: PIPERACILLIN SODIUM\TAZOBACTAM SODIUM
     Indication: CHOLECYSTITIS ACUTE
     Dosage: TEXTAZO 4G + 0.5 G POWDER FOR SOLUTION FOR INFUSION
     Route: 042
     Dates: start: 20190319, end: 20190408
  3. OMEPRAZOLE. [Concomitant]
     Active Substance: OMEPRAZOLE
     Indication: PRODUCT USED FOR UNKNOWN INDICATION
     Route: 048

REACTIONS (1)
  - Leukopenia [Recovering/Resolving]

NARRATIVE: CASE EVENT DATE: 20190403
